FAERS Safety Report 9229094 (Version 2)
Quarter: 2013Q2

REPORT INFORMATION
  Report Type: Spontaneous
  Country: GB (occurrence: GB)
  Receive Date: 20130412
  Receipt Date: 20130515
  Transmission Date: 20140414
  Serious: Yes (Death, Hospitalization)
  Sender: FDA-Public Use
  Company Number: GB-ASTRAZENECA-2013SE23313

PATIENT
  Age: 28642 Day
  Sex: Female
  Weight: 58 kg

DRUGS (6)
  1. BRILIQUE [Suspect]
     Indication: ACUTE MYOCARDIAL INFARCTION
     Route: 048
     Dates: start: 20130116
  2. ASPIRIN [Concomitant]
     Route: 048
  3. BISOPROLOL [Concomitant]
     Route: 048
  4. HYDRALAZINE [Concomitant]
     Route: 048
  5. FERROFLUIORIDE [Concomitant]
     Route: 048
  6. ROSUVASTATIN [Concomitant]
     Route: 048

REACTIONS (2)
  - Ventricular tachycardia [Fatal]
  - Acute coronary syndrome [Fatal]
